FAERS Safety Report 4734302-6 (Version None)
Quarter: 2005Q3

REPORT INFORMATION
  Report Type: 
  Country: None (occurrence: None)
  Receive Date: 20050802
  Receipt Date: 20050722
  Transmission Date: 20060218
  Serious: Yes (Hospitalization)
  Sender: FDA-Public Use
  Company Number: KII-2005-0017726

PATIENT
  Age: 45 Year
  Sex: Female

DRUGS (4)
  1. MORPHINE SULFATE [Suspect]
     Indication: PAIN
     Dosage: ORAL
     Route: 048
  2. HYDROMORPHONE HCL [Suspect]
     Indication: PAIN
     Dosage: ORAL
     Route: 048
  3. AMITRIPTYLINE HCL [Suspect]
     Dosage: ORAL
     Route: 048
  4. BENZODIAZEPINE DERIVATIVES [Suspect]
     Dosage: ORAL
     Route: 048

REACTIONS (6)
  - DEPRESSED LEVEL OF CONSCIOUSNESS [None]
  - MEDICATION ERROR [None]
  - MULTIPLE DRUG OVERDOSE [None]
  - OXYGEN SATURATION DECREASED [None]
  - RESPIRATORY ACIDOSIS [None]
  - TACHYCARDIA [None]
